FAERS Safety Report 8243922-6 (Version None)
Quarter: 2012Q1

REPORT INFORMATION
  Report Type: 
  Country: None (occurrence: None)
  Receive Date: 20120329
  Receipt Date: 20110711
  Transmission Date: 20120608
  Serious: No
  Sender: FDA-Public Use
  Company Number: US-MYLANLABS-2011S1013262

PATIENT
  Age: 50 Year
  Sex: Female
  Weight: 86.18 kg

DRUGS (13)
  1. BENZTROPINE MESYLATE [Concomitant]
  2. ESTRADIOL [Suspect]
     Indication: HORMONE REPLACEMENT THERAPY
     Dosage: CHANGED QW
     Route: 062
     Dates: start: 20100101
  3. KLONOPIN [Concomitant]
  4. LEVOTHROID [Concomitant]
  5. ZOFRAN [Concomitant]
  6. CLARITIN /00413701/ [Concomitant]
  7. PROZAC [Concomitant]
  8. PREVACID [Concomitant]
  9. EXTRA STRENGTH TYLENOL [Concomitant]
  10. BACLOFEN [Concomitant]
  11. HYDROCHLOROTHIAZIDE [Concomitant]
  12. LAMICTAL [Concomitant]
  13. RISPERDAL [Concomitant]

REACTIONS (1)
  - DISTURBANCE IN ATTENTION [None]
